FAERS Safety Report 21200485 (Version 1)
Quarter: 2022Q3

REPORT INFORMATION
  Report Type: Spontaneous
  Country: GB (occurrence: GB)
  Receive Date: 20220811
  Receipt Date: 20220811
  Transmission Date: 20221026
  Serious: Yes (Life-Threatening, Hospitalization)
  Sender: FDA-Public Use
  Company Number: GB-MHRA-MED-202207311618412370-HCRVW

PATIENT
  Age: 72 Year
  Sex: Female

DRUGS (1)
  1. TRIMETHOPRIM [Suspect]
     Active Substance: TRIMETHOPRIM
     Indication: Renal pain
     Dosage: 400 MILLIGRAM DAILY; 200MG TWICE A DAY;DURATION 1DAYS, A21319
     Route: 065
     Dates: start: 20220729, end: 20220729

REACTIONS (1)
  - Chest pain [Recovered/Resolved]

NARRATIVE: CASE EVENT DATE: 20220729
